FAERS Safety Report 21364472 (Version 1)
Quarter: 2022Q3

REPORT INFORMATION
  Report Type: Spontaneous
  Country: US (occurrence: US)
  Receive Date: 20220922
  Receipt Date: 20220922
  Transmission Date: 20221027
  Serious: No
  Sender: FDA-Public Use
  Company Number: US-GLENMARK PHARMACEUTICALS-2022GMK073610

PATIENT

DRUGS (2)
  1. PIMECROLIMUS [Suspect]
     Active Substance: PIMECROLIMUS
     Indication: Rash
     Dosage: UNK UNK, BID
     Route: 061
     Dates: start: 20220608, end: 20220608
  2. PIMECROLIMUS [Suspect]
     Active Substance: PIMECROLIMUS
     Dosage: UNK (APPLIED ONLY ONCE)
     Route: 061
     Dates: start: 202206, end: 2022

REACTIONS (6)
  - Application site inflammation [Recovered/Resolved]
  - Skin injury [Recovered/Resolved]
  - Rash [Recovered/Resolved]
  - Application site irritation [Recovered/Resolved]
  - Application site erythema [Recovered/Resolved]
  - Application site pain [Recovered/Resolved]

NARRATIVE: CASE EVENT DATE: 20220608
